FAERS Safety Report 11054734 (Version 1)
Quarter: 2015Q2

REPORT INFORMATION
  Report Type: Spontaneous
  Country: JP (occurrence: None)
  Receive Date: 20150420
  Receipt Date: 20150420
  Transmission Date: 20150821
  Serious: Yes (Hospitalization)
  Sender: FDA-Public Use
  Company Number: SP09270

PATIENT
  Age: 63 Year
  Sex: Male

DRUGS (12)
  1. NICORANDIL [Concomitant]
     Active Substance: NICORANDIL
  2. LIVALO [Concomitant]
     Active Substance: PITAVASTATIN CALCIUM
  3. SPIRONOLACTONE. [Concomitant]
     Active Substance: SPIRONOLACTONE
  4. MOVIPREP [Suspect]
     Active Substance: ASCORBIC ACID\POLYETHYLENE GLYCOL 3350\POTASSIUM CHLORIDE\SODIUM ASCORBATE\SODIUM CHLORIDE\SODIUM SULFATE
     Indication: BOWEL PREPARATION
     Route: 048
     Dates: start: 20150326, end: 20150326
  5. BAYASPIRIN [Concomitant]
     Active Substance: ASPIRIN
  6. ARTIST [Concomitant]
     Active Substance: CARVEDILOL
  7. FUROSEMIDE. [Concomitant]
     Active Substance: FUROSEMIDE
  8. FEBURIC [Concomitant]
     Active Substance: FEBUXOSTAT
  9. NEXIUM [Concomitant]
     Active Substance: ESOMEPRAZOLE MAGNESIUM
  10. WARFARIN [Concomitant]
     Active Substance: WARFARIN
  11. EPADEL [Concomitant]
     Active Substance: ICOSAPENT
  12. OLOPATADINE [Concomitant]
     Active Substance: OLOPATADINE

REACTIONS (8)
  - Discomfort [None]
  - Anaphylactoid reaction [None]
  - Erythema [None]
  - Hypoaesthesia [None]
  - Wheezing [None]
  - Urticaria [None]
  - Respiratory disorder [None]
  - Vomiting [None]

NARRATIVE: CASE EVENT DATE: 20150326
